FAERS Safety Report 6215476-7 (Version None)
Quarter: 2009Q2

REPORT INFORMATION
  Report Type: 
  Country: None (occurrence: None)
  Receive Date: 20090603
  Receipt Date: 20090520
  Transmission Date: 20091009
  Serious: Yes (Hospitalization)
  Sender: FDA-Public Use
  Company Number: GXKR2009FR06088

PATIENT
  Age: 35 Year
  Sex: Male

DRUGS (1)
  1. ZOLPIDEM (NGX) (ZOLPIDEM) TABLET [Suspect]
     Dosage: INTRA-ARTERIAL

REACTIONS (8)
  - AMPUTATION [None]
  - BLISTER [None]
  - DRUG ABUSE [None]
  - INFLAMMATION [None]
  - NECROSIS ISCHAEMIC [None]
  - PERIPHERAL ISCHAEMIA [None]
  - THROMBOSIS [None]
  - TREATMENT NONCOMPLIANCE [None]
